FAERS Safety Report 4927325-5 (Version None)
Quarter: 2006Q1

REPORT INFORMATION
  Report Type: 
  Country: None (occurrence: None)
  Receive Date: 20060228
  Receipt Date: 20050725
  Transmission Date: 20060701
  Serious: No
  Sender: FDA-Public Use
  Company Number: US-GLAXOSMITHKLINE-A0567539A

PATIENT
  Age: 36 Year
  Sex: Male

DRUGS (7)
  1. IMITREX [Suspect]
     Indication: MIGRAINE
     Dosage: 6MG VARIABLE DOSE
     Route: 058
     Dates: start: 20041001
  2. POTASSIUM [Concomitant]
  3. LISINOPRIL [Concomitant]
  4. LASIX [Concomitant]
  5. SEROQUEL [Concomitant]
  6. AMITRIPTYLINE HCL [Concomitant]
  7. TOPAMAX [Concomitant]

REACTIONS (1)
  - BURNING SENSATION [None]
